FAERS Safety Report 9538189 (Version 1)
Quarter: 2013Q3

REPORT INFORMATION
  Report Type: Spontaneous
  Country: US (occurrence: US)
  Receive Date: 20130920
  Receipt Date: 20130920
  Transmission Date: 20140515
  Serious: No
  Sender: FDA-Public Use
  Company Number: US-BIOGENIDEC-2013BI088815

PATIENT
  Sex: Male

DRUGS (2)
  1. TYSABRI [Suspect]
     Indication: MULTIPLE SCLEROSIS
     Route: 042
     Dates: start: 20070104, end: 20101227
  2. TYSABRI [Suspect]
     Indication: MULTIPLE SCLEROSIS
     Route: 042
     Dates: start: 20111118

REACTIONS (6)
  - Anxiety [Unknown]
  - Memory impairment [Unknown]
  - Gait disturbance [Unknown]
  - White blood cell disorder [Unknown]
  - Multiple sclerosis relapse [Unknown]
  - Fatigue [Unknown]
